FAERS Safety Report 9608559 (Version 1)
Quarter: 2013Q4

REPORT INFORMATION
  Report Type: Report from Study
  Country: PL (occurrence: PL)
  Receive Date: 20131009
  Receipt Date: 20131009
  Transmission Date: 20140711
  Serious: Yes (Hospitalization, Other)
  Sender: FDA-Public Use
  Company Number: PL-SA-2013SA097930

PATIENT
  Age: 88 Year
  Sex: Female
  Weight: 70 kg

DRUGS (8)
  1. DRONEDARONE [Suspect]
     Indication: ATRIAL FIBRILLATION
     Route: 048
     Dates: start: 20120712, end: 20130729
  2. BLINDED THERAPY [Suspect]
     Route: 048
     Dates: start: 20130712, end: 20130729
  3. SINTROM [Concomitant]
     Route: 065
     Dates: start: 20110120
  4. POTASSIUM CHLORIDE [Concomitant]
     Route: 065
     Dates: start: 20130514
  5. ZINADOL [Concomitant]
     Dates: end: 20130608
  6. SIMVASTATIN [Concomitant]
     Route: 065
     Dates: start: 20081010
  7. RAMIPRIL [Concomitant]
     Route: 065
     Dates: start: 20130802
  8. BISOPROLOL [Concomitant]
     Route: 065
     Dates: start: 20130802

REACTIONS (2)
  - Atrial fibrillation [Recovered/Resolved]
  - Cardiac failure congestive [Recovered/Resolved]
